FAERS Safety Report 16707393 (Version 2)
Quarter: 2019Q3

REPORT INFORMATION
  Report Type: Report from Study
  Country: CA (occurrence: CA)
  Receive Date: 20190815
  Receipt Date: 20190820
  Transmission Date: 20191004
  Serious: Yes (Hospitalization, Other)
  Sender: FDA-Public Use
  Company Number: PHHY2012CA092419

PATIENT
  Age: 56 Year
  Sex: Female

DRUGS (1)
  1. SANDOSTATIN LAR DEPOT [Suspect]
     Active Substance: OCTREOTIDE ACETATE
     Indication: NEUROENDOCRINE TUMOUR
     Dosage: 20 MG, QMO (EVERY 4 WEEKS)
     Route: 030
     Dates: start: 20090813

REACTIONS (16)
  - Injection site pain [Unknown]
  - Pneumonia [Unknown]
  - Peripheral swelling [Unknown]
  - Cough [Recovering/Resolving]
  - Abdominal pain [Unknown]
  - Flank pain [Unknown]
  - Back pain [Not Recovered/Not Resolved]
  - Nephrolithiasis [Unknown]
  - Kidney infection [Recovered/Resolved]
  - Renal pain [Unknown]
  - Blood pressure increased [Unknown]
  - Musculoskeletal discomfort [Unknown]
  - Pain in extremity [Unknown]
  - Kidney infection [Unknown]
  - Sciatica [Unknown]
  - Ligament injury [Unknown]

NARRATIVE: CASE EVENT DATE: 20150812
